FAERS Safety Report 15937023 (Version 3)
Quarter: 2019Q4

REPORT INFORMATION
  Report Type: Spontaneous
  Country: US (occurrence: US)
  Receive Date: 20190208
  Receipt Date: 20191118
  Transmission Date: 20200122
  Serious: Yes (Other)
  Sender: FDA-Public Use
  Company Number: US-ASTRAZENECA-2018SF13896

PATIENT
  Age: 62 Year
  Sex: Female

DRUGS (11)
  1. NEXIUM 24HR [Suspect]
     Active Substance: ESOMEPRAZOLE MAGNESIUM
     Route: 048
     Dates: start: 2008, end: 2012
  2. PRILOSEC [Suspect]
     Active Substance: OMEPRAZOLE MAGNESIUM
     Route: 048
     Dates: start: 2008, end: 2012
  3. NITROGLYCERIN. [Concomitant]
     Active Substance: NITROGLYCERIN
  4. AMLODIPINE [Concomitant]
     Active Substance: AMLODIPINE BESYLATE
  5. PRILOSEC OTC [Suspect]
     Active Substance: OMEPRAZOLE MAGNESIUM
     Route: 048
     Dates: start: 2008, end: 2012
  6. PREVACID 24 HR [Suspect]
     Active Substance: LANSOPRAZOLE
     Route: 065
     Dates: start: 2008, end: 2012
  7. PENICILLIN [Concomitant]
     Active Substance: PENICILLIN
  8. NEXIUM [Suspect]
     Active Substance: ESOMEPRAZOLE MAGNESIUM
     Route: 048
     Dates: start: 2008, end: 2012
  9. PROTONIX [Suspect]
     Active Substance: PANTOPRAZOLE SODIUM
     Route: 065
     Dates: start: 2008, end: 2012
  10. PREVACID [Suspect]
     Active Substance: LANSOPRAZOLE
     Route: 065
     Dates: start: 2008, end: 2012
  11. PREVACID [Suspect]
     Active Substance: LANSOPRAZOLE
     Route: 065

REACTIONS (3)
  - End stage renal disease [Unknown]
  - Acute kidney injury [Unknown]
  - Renal injury [Unknown]
